FAERS Safety Report 25577946 (Version 2)
Quarter: 2025Q3

REPORT INFORMATION
  Report Type: Spontaneous
  Country: US (occurrence: US)
  Receive Date: 20250718
  Receipt Date: 20250815
  Transmission Date: 20251021
  Serious: No
  Sender: PFIZER
  Company Number: US-PFIZER INC-202500144952

PATIENT
  Age: 52 Year
  Sex: Male
  Weight: 90.72 kg

DRUGS (3)
  1. BICILLIN L-A [Suspect]
     Active Substance: PENICILLIN G BENZATHINE
     Indication: Sexually transmitted disease
     Dosage: 2.4 MILLION UNITS WEEKLY FOR THREE WEEKS
     Route: 030
     Dates: start: 20250626, end: 20250626
  2. BICILLIN L-A [Suspect]
     Active Substance: PENICILLIN G BENZATHINE
     Dosage: 2.4 MILLION UNITS WEEKLY FOR THREE WEEKS
     Route: 030
     Dates: start: 20250703, end: 20250703
  3. BICILLIN L-A [Suspect]
     Active Substance: PENICILLIN G BENZATHINE
     Dosage: 2.4 MILLION UNITS WEEKLY FOR THREE WEEKS
     Route: 030
     Dates: start: 20250710, end: 20250710

REACTIONS (1)
  - Recalled product administered [Unknown]

NARRATIVE: CASE EVENT DATE: 20250626
